FAERS Safety Report 5364571-3 (Version None)
Quarter: 2007Q2

REPORT INFORMATION
  Report Type: 
  Country: None (occurrence: None)
  Receive Date: 20070530
  Receipt Date: 20070119
  Transmission Date: 20071010
  Serious: No
  Sender: FDA-Public Use
  Company Number: 2007PV028678

PATIENT
  Age: 57 Year
  Sex: Female
  Weight: 131.5431 kg

DRUGS (6)
  1. BYETTA [Suspect]
     Indication: DIABETES MELLITUS NON-INSULIN-DEPENDENT
     Dosage: 5 MCG;BID;SC
     Route: 058
     Dates: start: 20070108
  2. METFORMIN HCL [Concomitant]
  3. METHOTREXATE [Concomitant]
  4. LASIX [Concomitant]
  5. STERIODS [Concomitant]
  6. STERIOD INJECTIONS [Concomitant]

REACTIONS (5)
  - DECREASED APPETITE [None]
  - FLANK PAIN [None]
  - NAUSEA [None]
  - VOMITING [None]
  - WEIGHT DECREASED [None]
